FAERS Safety Report 24107546 (Version 5)
Quarter: 2025Q2

REPORT INFORMATION
  Report Type: Report from Study
  Country: US (occurrence: US)
  Receive Date: 20240718
  Receipt Date: 20250417
  Transmission Date: 20250717
  Serious: Yes (Hospitalization)
  Sender: BOEHRINGER INGELHEIM
  Company Number: US-BoehringerIngelheim-2023-BI-265058

PATIENT
  Age: 80 Year
  Sex: Female

DRUGS (1)
  1. OFEV [Suspect]
     Active Substance: NINTEDANIB
     Indication: Idiopathic pulmonary fibrosis
     Dosage: LOT NUMBER: 300319,304568, 403519A
     Dates: start: 20230925

REACTIONS (14)
  - Dizziness [Unknown]
  - Cardiac arrest [Unknown]
  - Haemorrhoidal haemorrhage [Unknown]
  - Back pain [Unknown]
  - Fatigue [Unknown]
  - Insomnia [Unknown]
  - Fatigue [Not Recovered/Not Resolved]
  - Constipation [Unknown]
  - Intervertebral disc operation [Unknown]
  - Nasal operation [Unknown]
  - Frequent bowel movements [Unknown]
  - Hypertension [Unknown]
  - Weight increased [Unknown]
  - Abdominal distension [Unknown]

NARRATIVE: CASE EVENT DATE: 20230901
